FAERS Safety Report 5819633-0 (Version None)
Quarter: 2008Q3

REPORT INFORMATION
  Report Type: 
  Country: None (occurrence: None)
  Receive Date: 20080723
  Receipt Date: 20080715
  Transmission Date: 20090109
  Serious: No
  Sender: FDA-Public Use
  Company Number: US-BOEHRINGER INGELHEIM GMBH, GERMANY-2008-BP-11194BP

PATIENT
  Sex: Female

DRUGS (3)
  1. SPIRIVA [Suspect]
  2. ALBUTEROL [Concomitant]
  3. PROAIR HFA [Concomitant]

REACTIONS (1)
  - HYPERSENSITIVITY [None]
